FAERS Safety Report 4748650-7 (Version None)
Quarter: 2005Q3

REPORT INFORMATION
  Report Type: 
  Country: None (occurrence: None)
  Receive Date: 20050817
  Receipt Date: 20050809
  Transmission Date: 20060218
  Serious: Yes (Disabling, Other)
  Sender: FDA-Public Use
  Company Number: 2005113362

PATIENT
  Sex: Female

DRUGS (4)
  1. XANAX [Suspect]
     Indication: ILL-DEFINED DISORDER
     Dates: start: 19930101, end: 19970101
  2. CLEOCRIN T SOLUTION (CLINDAMYCIN PHOSPHATE) [Suspect]
     Indication: ILL-DEFINED DISORDER
     Dates: start: 19930101, end: 19970101
  3. ZOLOFT [Suspect]
     Indication: ILL-DEFINED DISORDER
     Dates: start: 19930101, end: 19970101
  4. PAXIL [Concomitant]

REACTIONS (1)
  - BIPOLAR DISORDER [None]
